FAERS Safety Report 9462627 (Version 1)
Quarter: 2013Q3

REPORT INFORMATION
  Report Type: Report from Study
  Country: US (occurrence: US)
  Receive Date: 20130816
  Receipt Date: 20130816
  Transmission Date: 20140515
  Serious: Yes (Other)
  Sender: FDA-Public Use
  Company Number: US-ABBOTT-13P-163-1130842-00

PATIENT
  Sex: Female

DRUGS (3)
  1. HUMIRA [Suspect]
     Indication: PSORIATIC ARTHROPATHY
     Route: 058
     Dates: start: 201303, end: 201305
  2. HUMIRA [Suspect]
     Route: 058
     Dates: start: 201306
  3. INSULIN [Concomitant]
     Indication: DIABETES MELLITUS
     Route: 050

REACTIONS (1)
  - Diabetes mellitus [Unknown]
